FAERS Safety Report 8436470-1 (Version None)
Quarter: 2012Q2

REPORT INFORMATION
  Report Type: 
  Country: None (occurrence: None)
  Receive Date: 20120614
  Receipt Date: 20120605
  Transmission Date: 20120825
  Serious: Yes (Hospitalization)
  Sender: FDA-Public Use
  Company Number: US-BAYER-2012-042598

PATIENT
  Age: 17 Year
  Sex: Female
  Weight: 78.458 kg

DRUGS (3)
  1. ANTIBIOTICS [Concomitant]
  2. YASMIN [Suspect]
     Indication: CONTRACEPTION
     Dosage: UNK
     Dates: start: 20060309, end: 20070405
  3. NSAID'S [Concomitant]
     Dosage: OTC

REACTIONS (6)
  - BACK PAIN [None]
  - INJURY [None]
  - PULMONARY EMBOLISM [None]
  - DEEP VEIN THROMBOSIS [None]
  - PAIN [None]
  - PAIN IN EXTREMITY [None]
